FAERS Safety Report 9796273 (Version 3)
Quarter: 2014Q1

REPORT INFORMATION
  Report Type: Report from Study
  Country: DE (occurrence: CO)
  Receive Date: 20140103
  Receipt Date: 20140313
  Transmission Date: 20141002
  Serious: Yes (Death, Hospitalization)
  Sender: FDA-Public Use
  Company Number: DE-ACTELION-A-NJ2013-93164

PATIENT
  Age: 41 Year
  Sex: Female

DRUGS (1)
  1. VENTAVIS [Suspect]
     Indication: PULMONARY HYPERTENSION
     Dosage: UNK, IRREGULAR
     Route: 055
     Dates: start: 20120507

REACTIONS (4)
  - Ascites [Fatal]
  - Fluid retention [Fatal]
  - Inflammation [Unknown]
  - Protein total decreased [Unknown]
